FAERS Safety Report 8354630-5 (Version None)
Quarter: 2012Q2

REPORT INFORMATION
  Report Type: 
  Country: None (occurrence: None)
  Receive Date: 20120511
  Receipt Date: 20120504
  Transmission Date: 20120825
  Serious: Yes (Other)
  Sender: FDA-Public Use
  Company Number: US-MERCK-1205USA00734

PATIENT
  Age: 59 Year
  Weight: 65 kg

DRUGS (13)
  1. HYDROXYCHLOROQUINE SULFATE [Concomitant]
     Route: 065
  2. ASPIRIN [Concomitant]
     Route: 065
  3. ACYCLOVIR [Concomitant]
     Route: 065
  4. CYCLOSPORINE [Concomitant]
     Route: 065
  5. FORTEO [Suspect]
     Indication: OSTEOPOROSIS
     Route: 065
     Dates: start: 20100512, end: 20111101
  6. MINOCYCLINE [Concomitant]
     Route: 065
  7. FOSAMAX [Suspect]
     Route: 048
  8. FORTEO [Suspect]
     Route: 065
     Dates: start: 20120226, end: 20120226
  9. PREDNISONE [Concomitant]
     Route: 047
  10. DUREZOL [Concomitant]
     Route: 065
  11. CALCIUM (UNSPECIFIED) [Concomitant]
     Route: 065
  12. EFFEXOR [Concomitant]
     Route: 065
  13. METOPROLOL [Concomitant]
     Route: 065

REACTIONS (10)
  - CONJUNCTIVITIS INFECTIVE [None]
  - FALL [None]
  - OSTEOARTHRITIS [None]
  - HIP FRACTURE [None]
  - CORNEAL DISORDER [None]
  - CALCINOSIS [None]
  - BLOOD CALCIUM INCREASED [None]
  - HERPES ZOSTER [None]
  - JAW FRACTURE [None]
  - HAND FRACTURE [None]
